FAERS Safety Report 8976176 (Version 2)
Quarter: 2013Q1

REPORT INFORMATION
  Report Type: Spontaneous
  Country: US (occurrence: US)
  Receive Date: 20121220
  Receipt Date: 20130211
  Transmission Date: 20140127
  Serious: Yes (Death)
  Sender: FDA-Public Use
  Company Number: US-ELI_LILLY_AND_COMPANY-US201212005953

PATIENT
  Sex: Female

DRUGS (3)
  1. GEMZAR [Suspect]
     Indication: OVARIAN CANCER
     Dosage: UNK
     Route: 065
     Dates: start: 20111208
  2. AVASTIN [Concomitant]
  3. ALOXI [Concomitant]

REACTIONS (1)
  - Death [Fatal]
